FAERS Safety Report 22218130 (Version 1)
Quarter: 2023Q2

REPORT INFORMATION
  Report Type: Spontaneous
  Country: BR (occurrence: BR)
  Receive Date: 20230417
  Receipt Date: 20230417
  Transmission Date: 20230722
  Serious: Yes (Other)
  Sender: FDA-Public Use
  Company Number: BR-PFIZER INC-202300147630

PATIENT
  Age: 69 Year
  Sex: Female

DRUGS (5)
  1. BEVACIZUMAB [Suspect]
     Active Substance: BEVACIZUMAB
     Indication: Retinal vein occlusion
     Dosage: 1 DF (ONE INJECTION OF BEVACIZUMAB 1.25 MG/0.05 ML)
  2. BEVACIZUMAB [Suspect]
     Active Substance: BEVACIZUMAB
     Indication: Haemorrhagic occlusive retinal vasculitis
     Dosage: UNK (1.25 MG/0.05 ML; 4 INTRAVITREAL INJECTIONS)
     Route: 050
  3. PREDNISONE [Suspect]
     Active Substance: PREDNISONE
     Indication: Haemorrhagic occlusive retinal vasculitis
     Dosage: 60 MG, DAILY
     Route: 048
  4. PREDNISONE [Suspect]
     Active Substance: PREDNISONE
     Dosage: UNK (GRADUAL REDUCTION)
     Route: 048
  5. TRIAMCINOLONE [Suspect]
     Active Substance: TRIAMCINOLONE
     Indication: Haemorrhagic occlusive retinal vasculitis
     Dosage: UNK (1 INTRAVITREAL INJECTION)
     Route: 050

REACTIONS (4)
  - Off label use [Unknown]
  - Drug ineffective for unapproved indication [Unknown]
  - Glaucoma [Unknown]
  - Off label use [Unknown]
